FAERS Safety Report 16553482 (Version 2)
Quarter: 2019Q3

REPORT INFORMATION
  Report Type: Spontaneous
  Country: GB (occurrence: GB)
  Receive Date: 20190710
  Receipt Date: 20190827
  Transmission Date: 20191004
  Serious: Yes (Other)
  Sender: FDA-Public Use
  Company Number: GB-ASTRAZENECA-2019SE95856

PATIENT
  Age: 79 Year
  Sex: Female

DRUGS (7)
  1. ALIROCUMAB [Suspect]
     Active Substance: ALIROCUMAB
     Indication: BLOOD PRESSURE MEASUREMENT
     Dosage: 75 MG, QOW
     Route: 030
     Dates: start: 201811, end: 20190430
  2. DISPERIN [Concomitant]
     Indication: ANTICOAGULANT THERAPY
     Dosage: 75.0MG UNKNOWN
     Dates: start: 2011
  3. CARDIDE SR [Concomitant]
     Indication: BLOOD PRESSURE MEASUREMENT
     Dosage: 1-5 MG
     Dates: start: 2011
  4. ROSUVASTATIN. [Suspect]
     Active Substance: ROSUVASTATIN
     Indication: BLOOD CHOLESTEROL
     Dosage: 20.0MG UNKNOWN
     Route: 048
     Dates: start: 1992
  5. EZETIMIBE. [Suspect]
     Active Substance: EZETIMIBE
     Indication: BLOOD CHOLESTEROL
     Dosage: 10.0MG UNKNOWN
     Route: 065
     Dates: start: 1992
  6. DISPERIN [Concomitant]
     Indication: CARDIAC DISORDER
     Dosage: 75.0MG UNKNOWN
     Dates: start: 2011
  7. COCODAMOL [Concomitant]
     Active Substance: ACETAMINOPHEN\CODEINE PHOSPHATE
     Indication: PAIN
     Dosage: UNK

REACTIONS (5)
  - Lethargy [Recovered/Resolved]
  - Depression [Recovered/Resolved]
  - Depressed mood [Not Recovered/Not Resolved]
  - Gastric ulcer [Recovered/Resolved]
  - Insomnia [Recovered/Resolved]

NARRATIVE: CASE EVENT DATE: 201904
